FAERS Safety Report 5268810-9 (Version None)
Quarter: 2007Q1

REPORT INFORMATION
  Report Type: 
  Country: None (occurrence: None)
  Receive Date: 20061213
  Receipt Date: 20051109
  Transmission Date: 20070707
  Serious: No
  Sender: FDA-Public Use
  Company Number: 2005UW17148

PATIENT
  Age: 83 Year
  Sex: Female

DRUGS (1)
  1. TAMOXIFEN CITRATE [Suspect]

REACTIONS (1)
  - THROMBOSIS [None]
